FAERS Safety Report 9753181 (Version 2)
Quarter: 2015Q3

REPORT INFORMATION
  Report Type: Spontaneous
  Country: US (occurrence: US)
  Receive Date: 20131213
  Receipt Date: 20150805
  Transmission Date: 20151125
  Serious: No
  Sender: FDA-Public Use
  Company Number: US-GILEAD-2010-0026913

PATIENT
  Age: 71 Year
  Sex: Female
  Weight: 92.08 kg

DRUGS (12)
  1. LETAIRIS [Suspect]
     Active Substance: AMBRISENTAN
     Indication: PULMONARY ARTERIAL HYPERTENSION
     Route: 048
     Dates: start: 20100113
  2. LETAIRIS [Suspect]
     Active Substance: AMBRISENTAN
     Route: 048
     Dates: start: 20090608, end: 20100113
  3. FUROSEMIDE. [Concomitant]
     Active Substance: FUROSEMIDE
  4. CITRACAL [Concomitant]
     Active Substance: CALCIUM CITRATE
  5. LEVOTHYROXINE. [Concomitant]
     Active Substance: LEVOTHYROXINE
  6. ACTOS [Concomitant]
     Active Substance: PIOGLITAZONE HYDROCHLORIDE
  7. PENTOXIFYLLINE. [Concomitant]
     Active Substance: PENTOXIFYLLINE
  8. SIMVASTATIN. [Concomitant]
     Active Substance: SIMVASTATIN
  9. MVI [Concomitant]
     Active Substance: VITAMINS
  10. ENALAPRIL [Concomitant]
     Active Substance: ENALAPRIL
  11. GLYBURIDE. [Concomitant]
     Active Substance: GLYBURIDE
  12. BABY ASPIRIN [Concomitant]
     Active Substance: ASPIRIN

REACTIONS (1)
  - Oedema peripheral [Not Recovered/Not Resolved]

NARRATIVE: CASE EVENT DATE: 20100120
